FAERS Safety Report 8988388 (Version 1)
Quarter: 2012Q4

REPORT INFORMATION
  Report Type: Spontaneous
  Country: US (occurrence: None)
  Receive Date: 20121220
  Receipt Date: 20121220
  Transmission Date: 20130627
  Serious: No
  Sender: FDA-Public Use
  Company Number: None

PATIENT
  Sex: Male

DRUGS (1)
  1. ENBREL [Suspect]
     Indication: UNSPECIFIED INFLAMMATORY SPONDYLOPATHY
     Dates: start: 201208

REACTIONS (2)
  - Hyperaesthesia [None]
  - Pain of skin [None]
